FAERS Safety Report 25385481 (Version 1)
Quarter: 2025Q2

REPORT INFORMATION
  Report Type: Spontaneous
  Country: US (occurrence: None)
  Receive Date: 20250601
  Receipt Date: 20250601
  Transmission Date: 20250716
  Serious: Yes (Death, Life-Threatening, Hospitalization)
  Sender: FDA-CTU
  Company Number: None

PATIENT
  Age: 63 Year
  Sex: Male
  Weight: 78.75 kg

DRUGS (1)
  1. KEYTRUDA [Suspect]
     Active Substance: PEMBROLIZUMAB
     Indication: Renal cell carcinoma
     Dates: start: 20240228, end: 20240320

REACTIONS (6)
  - Atrioventricular block complete [None]
  - Fall [None]
  - Head injury [None]
  - Thrombosis [None]
  - Haematuria [None]
  - Troponin increased [None]

NARRATIVE: CASE EVENT DATE: 20240324
